FAERS Safety Report 17501026 (Version 1)
Quarter: 2020Q1

REPORT INFORMATION
  Report Type: Spontaneous
  Country: MX (occurrence: MX)
  Receive Date: 20200305
  Receipt Date: 20200305
  Transmission Date: 20200409
  Serious: Yes (Disabling)
  Sender: FDA-Public Use
  Company Number: MX-ABBVIE-20K-107-3303641-00

PATIENT
  Age: 44 Year
  Sex: Male
  Weight: 87 kg

DRUGS (1)
  1. HUMIRA [Suspect]
     Active Substance: ADALIMUMAB
     Indication: PSORIASIS
     Route: 058
     Dates: start: 2017

REACTIONS (5)
  - Nail disorder [Unknown]
  - Ligament sprain [Recovering/Resolving]
  - Tuberculin test positive [Unknown]
  - Psoriasis [Unknown]
  - Accident [Unknown]

NARRATIVE: CASE EVENT DATE: 201703
